FAERS Safety Report 9937278 (Version 2)
Quarter: 2014Q1

REPORT INFORMATION
  Report Type: Spontaneous
  Country: US (occurrence: US)
  Receive Date: 20140302
  Receipt Date: 20140302
  Transmission Date: 20141002
  Serious: Yes (Other)
  Sender: FDA-Public Use
  Company Number: US-GE HEALTHCARE MEDICAL DIAGNOSTICS-OSCN-PR-0902S-0082

PATIENT
  Sex: Male
  Weight: 86 kg

DRUGS (8)
  1. OMNISCAN [Suspect]
     Indication: PRODUCT USED FOR UNKNOWN INDICATION
     Dates: start: 20050521, end: 20050521
  2. MAGNEVIST [Suspect]
     Indication: PRODUCT USED FOR UNKNOWN INDICATION
     Route: 042
     Dates: start: 20001128, end: 20001128
  3. MAGNEVIST [Suspect]
     Route: 042
     Dates: start: 20080721
  4. BENICAR [Concomitant]
     Dates: start: 1998
  5. WARFARIN [Concomitant]
     Dates: start: 1998
  6. AMIODARONE [Concomitant]
     Dates: start: 1998
  7. COREG [Concomitant]
     Dates: start: 1998
  8. NORVASC [Concomitant]
     Dates: start: 1998, end: 2007

REACTIONS (1)
  - Nephrogenic systemic fibrosis [Not Recovered/Not Resolved]
